FAERS Safety Report 6249257-5 (Version None)
Quarter: 2009Q2

REPORT INFORMATION
  Report Type: 
  Country: None (occurrence: None)
  Receive Date: 20090629
  Receipt Date: 20090618
  Transmission Date: 20091009
  Serious: Yes (Hospitalization, Other)
  Sender: FDA-Public Use
  Company Number: US-MERCK-0902USA00397

PATIENT
  Age: 55 Year
  Sex: Female
  Weight: 68 kg

DRUGS (1)
  1. FOSAMAX [Suspect]
     Indication: RESORPTION BONE INCREASED
     Route: 048
     Dates: start: 20020101, end: 20070126

REACTIONS (36)
  - ABSCESS JAW [None]
  - ADVERSE DRUG REACTION [None]
  - ALLERGIC RESPIRATORY DISEASE [None]
  - ANKLE FRACTURE [None]
  - APPENDICEAL ABSCESS [None]
  - APPENDICITIS [None]
  - ARTHRITIS [None]
  - BLOOD CALCIUM INCREASED [None]
  - BUCCAL POLYP [None]
  - CARPAL TUNNEL SYNDROME [None]
  - CELLULITIS [None]
  - CUBITAL TUNNEL SYNDROME [None]
  - DENTAL FISTULA [None]
  - DRUG HYPERSENSITIVITY [None]
  - DRUG INEFFECTIVE [None]
  - DYSURIA [None]
  - EXOSTOSIS [None]
  - FOOT FRACTURE [None]
  - HYPERCHOLESTEROLAEMIA [None]
  - HYPERLIPIDAEMIA [None]
  - HYPERPARATHYROIDISM [None]
  - MENOPAUSE [None]
  - MOUTH ULCERATION [None]
  - NAUSEA [None]
  - NECK PAIN [None]
  - ORAL DISORDER [None]
  - ORAL TORUS [None]
  - OSTEOARTHRITIS [None]
  - OSTEONECROSIS [None]
  - OSTEOPOROSIS [None]
  - PHLEBITIS [None]
  - RESORPTION BONE INCREASED [None]
  - SOFT TISSUE INFLAMMATION [None]
  - SYNOVIAL CYST [None]
  - URINARY TRACT INFECTION [None]
  - VOMITING [None]
